FAERS Safety Report 14111846 (Version 1)
Quarter: 2017Q4

REPORT INFORMATION
  Report Type: Spontaneous
  Country: FR (occurrence: FR)
  Receive Date: 20171020
  Receipt Date: 20171020
  Transmission Date: 20180321
  Serious: Yes (Other)
  Sender: FDA-Public Use
  Company Number: FR-MERCK KGAA-2030971

PATIENT
  Age: 54 Year
  Sex: Female

DRUGS (1)
  1. NOVOTHYROX [Suspect]
     Active Substance: LEVOTHYROXINE SODIUM
     Indication: HYPOTHYROIDISM
     Route: 048
     Dates: start: 20170601, end: 20170828

REACTIONS (17)
  - Malaise [Unknown]
  - Abdominal pain [Unknown]
  - Chest discomfort [Unknown]
  - Feeling drunk [Unknown]
  - Tachycardia [Unknown]
  - Vision blurred [Unknown]
  - Fatigue [Unknown]
  - Blood thyroid stimulating hormone increased [Unknown]
  - Headache [Unknown]
  - Extrasystoles [Unknown]
  - Chills [Unknown]
  - Diarrhoea [Unknown]
  - Disturbance in attention [Unknown]
  - Dizziness [Unknown]
  - Hot flush [Unknown]
  - Insomnia [Unknown]
  - Nausea [Unknown]

NARRATIVE: CASE EVENT DATE: 20170609
